FAERS Safety Report 8803169 (Version 1)
Quarter: 2012Q4

REPORT INFORMATION
  Report Type: 
  Country: BR (occurrence: BR)
  Receive Date: 20120924
  Receipt Date: 20120924
  Transmission Date: 20130627
  Serious: Yes (Hospitalization)
  Sender: FDA-Public Use
  Company Number: BR-ABBOTT-12P-020-0974754-00

PATIENT
  Age: 58 Year
  Sex: Male

DRUGS (2)
  1. ATACAND COMB [Suspect]
     Indication: HYPERTENSION
     Route: 048
     Dates: end: 2012
  2. FELODIPINE [Suspect]
     Indication: HYPERTENSION
     Route: 048
     Dates: end: 2012

REACTIONS (2)
  - Arterial graft [Recovered/Resolved]
  - Vascular graft [Recovered/Resolved]
